FAERS Safety Report 6416634-9 (Version None)
Quarter: 2009Q4

REPORT INFORMATION
  Report Type: 
  Country: None (occurrence: None)
  Receive Date: 20091027
  Receipt Date: 20091016
  Transmission Date: 20100525
  Serious: Yes (Other)
  Sender: FDA-Public Use
  Company Number: NL-AMGEN-US366177

PATIENT
  Age: 61 Year
  Sex: Female

DRUGS (6)
  1. ENBREL [Suspect]
     Indication: RHEUMATOID ARTHRITIS
     Route: 058
     Dates: start: 20010101, end: 20060501
  2. ENBREL [Suspect]
     Route: 058
     Dates: start: 20070801
  3. ACTONEL [Concomitant]
     Route: 065
  4. MOVICOX [Concomitant]
     Dosage: AS NEEDED
     Route: 065
  5. METHOTREXATE [Concomitant]
     Route: 065
  6. NIFEDIPINE [Concomitant]
     Route: 065

REACTIONS (1)
  - ACOUSTIC NEUROMA [None]
